FAERS Safety Report 18986285 (Version 1)
Quarter: 2021Q1

REPORT INFORMATION
  Report Type: Spontaneous
  Country: US (occurrence: US)
  Receive Date: 20210308
  Receipt Date: 20210308
  Transmission Date: 20210420
  Serious: Yes (Death)
  Sender: FDA-Public Use
  Company Number: None

PATIENT
  Age: 69 Year
  Sex: Male
  Weight: 62.7 kg

DRUGS (1)
  1. YESCARTA [Suspect]
     Active Substance: AXICABTAGENE CILOLEUCEL
     Indication: NON-HODGKIN^S LYMPHOMA
     Dosage: ?          OTHER FREQUENCY:ONCE;?
     Route: 041
     Dates: start: 20201207, end: 20201207

REACTIONS (17)
  - Tachypnoea [None]
  - Tachycardia [None]
  - Pulmonary oedema [None]
  - Cardio-respiratory arrest [None]
  - Mental status changes [None]
  - Vomiting [None]
  - Hypertension [None]
  - Nausea [None]
  - Septic shock [None]
  - Sepsis [None]
  - Acidosis [None]
  - Neurotoxicity [None]
  - Pneumonia [None]
  - Encephalopathy [None]
  - Asthenia [None]
  - Decreased appetite [None]
  - Fluid overload [None]

NARRATIVE: CASE EVENT DATE: 20210211
